FAERS Safety Report 19916426 (Version 3)
Quarter: 2022Q1

REPORT INFORMATION
  Report Type: Report from Study
  Country: US (occurrence: US)
  Receive Date: 20211005
  Receipt Date: 20220121
  Transmission Date: 20220423
  Serious: No
  Sender: FDA-Public Use
  Company Number: US-NOVARTISTESTPH-NVSC2021US226588

PATIENT
  Age: 44 Year
  Sex: Female

DRUGS (4)
  1. KESIMPTA [Suspect]
     Active Substance: OFATUMUMAB
     Indication: Relapsing multiple sclerosis
     Dosage: 20 MG, QM
     Route: 058
     Dates: start: 20210924
  2. KESIMPTA [Suspect]
     Active Substance: OFATUMUMAB
     Indication: Cisternogram
     Dosage: 20 MG, QMO
     Route: 058
     Dates: start: 20210924, end: 20211105
  3. KESIMPTA [Suspect]
     Active Substance: OFATUMUMAB
     Indication: Relapsing-remitting multiple sclerosis
  4. KESIMPTA [Suspect]
     Active Substance: OFATUMUMAB
     Indication: Progressive multiple sclerosis

REACTIONS (5)
  - Joint stiffness [Recovering/Resolving]
  - Fatigue [Recovering/Resolving]
  - Product storage error [Recovering/Resolving]
  - Sinusitis [Recovering/Resolving]
  - Pain [Recovering/Resolving]

NARRATIVE: CASE EVENT DATE: 20210924
